FAERS Safety Report 6145821 (Version 2)
Quarter: 2018Q4

REPORT INFORMATION
  Report Type: Spontaneous
  Country: GB (occurrence: GB)
  Receive Date: 20061002
  Receipt Date: 20181031
  Transmission Date: 20190205
  Serious: Yes (Death, Life-Threatening)
  Sender: FDA-Public Use
  Company Number: GXKR2006GB05921

PATIENT
  Age: 75 Year
  Sex: Female

DRUGS (8)
  1. FLUTICASONE PROPIONATE W/SALMETEROL XINAFOATE [Concomitant]
     Active Substance: FLUTICASONE PROPIONATE\SALMETEROL XINAFOATE
     Indication: CHRONIC OBSTRUCTIVE PULMONARY DISEASE
     Dosage: 2 DF, BID
     Route: 055
     Dates: start: 20060607
  2. VENTOLIN [Concomitant]
     Active Substance: ALBUTEROL SULFATE
     Indication: CHRONIC OBSTRUCTIVE PULMONARY DISEASE
     Dosage: 2 DF, PRN
     Route: 055
     Dates: start: 20060607
  3. SERETIDE [Concomitant]
     Active Substance: FLUTICASONE PROPIONATE\SALMETEROL XINAFOATE
     Indication: CHRONIC OBSTRUCTIVE PULMONARY DISEASE
     Dosage: 2 UNK, QD
     Route: 055
     Dates: start: 20060607
  4. FUROSEMIDE. [Concomitant]
     Active Substance: FUROSEMIDE
     Indication: CARDIAC FAILURE CONGESTIVE
     Dosage: 40 MG, QD
     Route: 048
     Dates: start: 20060704
  5. QUININE SULPHATE [Concomitant]
     Active Substance: QUININE SULFATE
     Indication: MUSCLE SPASMS
     Dosage: 300 MG, QD
     Route: 048
     Dates: start: 20060818, end: 20060824
  6. PAROXETINE. [Suspect]
     Active Substance: PAROXETINE
     Indication: DEPRESSION
     Dosage: 20 MG, QD
     Route: 048
     Dates: start: 20060622, end: 20060823
  7. SPIRIVA [Concomitant]
     Active Substance: TIOTROPIUM BROMIDE MONOHYDRATE
     Indication: CHRONIC OBSTRUCTIVE PULMONARY DISEASE
     Dosage: 1 DF, QD
     Route: 055
     Dates: start: 20060607
  8. TRAMADOL. [Concomitant]
     Active Substance: TRAMADOL
     Indication: BACK PAIN
     Dosage: 50 MG, UNK
     Route: 048
     Dates: start: 20031029, end: 20060825

REACTIONS (11)
  - Coma [Fatal]
  - Alanine aminotransferase increased [Fatal]
  - Prothrombin time prolonged [Fatal]
  - Gamma-glutamyltransferase increased [Fatal]
  - Blood bilirubin increased [Fatal]
  - Somnolence [Fatal]
  - Aspartate aminotransferase increased [Fatal]
  - Transaminases increased [Fatal]
  - Somnolence [Not Recovered/Not Resolved]
  - Hepatic failure [Fatal]
  - Liver function test abnormal [Fatal]

NARRATIVE: CASE EVENT DATE: 20060811
